FAERS Safety Report 5733027-8 (Version None)
Quarter: 2008Q2

REPORT INFORMATION
  Report Type: 
  Country: None (occurrence: None)
  Receive Date: 20080505
  Receipt Date: 20080124
  Transmission Date: 20081010
  Serious: Yes (Other)
  Sender: FDA-Public Use
  Company Number: PHEH2008US01203

PATIENT

DRUGS (1)
  1. EXELON [Suspect]
     Dosage: TRANSDERMAL
     Route: 062

REACTIONS (1)
  - HALLUCINATION [None]
